FAERS Safety Report 9521571 (Version 1)
Quarter: 2013Q3

REPORT INFORMATION
  Report Type: Spontaneous
  Country: US (occurrence: None)
  Receive Date: 20130911
  Receipt Date: 20130911
  Transmission Date: 20140515
  Serious: Yes (Hospitalization)
  Sender: FDA-Public Use
  Company Number: AEUSA201300143

PATIENT
  Age: 66 Year
  Sex: Male

DRUGS (17)
  1. GAMUNEX [Suspect]
     Indication: IMMUNODEFICIENCY COMMON VARIABLE
     Route: 042
     Dates: start: 20130416, end: 20130416
  2. ACETAMINOPHEN [Concomitant]
  3. DIPHENHYDRAMINE [Concomitant]
  4. OXYCODONE [Concomitant]
  5. OMEPRAZOLE [Concomitant]
  6. MULTIVITAMIN / 00097801/ [Concomitant]
  7. PRAVASTATIN [Concomitant]
  8. ALBUTEROL [Concomitant]
  9. LISINOPRIL [Concomitant]
  10. LEVOTHYROXINE [Concomitant]
  11. CETIRIZINE [Concomitant]
  12. LACTOBACILLUS [Concomitant]
  13. TOBRAMYCIN [Concomitant]
  14. KETOPROFEN [Concomitant]
  15. REFRESH [Concomitant]
  16. OFLOXACIN [Concomitant]
  17. GAMUNEX [Concomitant]

REACTIONS (4)
  - Hypotension [None]
  - Pyrexia [None]
  - Chills [None]
  - Rash [None]
